FAERS Safety Report 9483485 (Version 1)
Quarter: 2013Q3

REPORT INFORMATION
  Report Type: Spontaneous
  Country: CA (occurrence: CA)
  Receive Date: 20130828
  Receipt Date: 20130828
  Transmission Date: 20140515
  Serious: Yes (Disabling, Other)
  Sender: FDA-Public Use
  Company Number: CA-AMGEN-KDL272462

PATIENT
  Age: 56 Year
  Sex: Female
  Weight: 68.1 kg

DRUGS (5)
  1. ENBREL [Suspect]
     Indication: PSORIATIC ARTHROPATHY
     Dosage: 50 MG, QWK
     Route: 058
     Dates: start: 20070411, end: 200710
  2. METHOTREXATE [Concomitant]
     Dosage: UNK UNK, UNK
  3. SULFASALAZINE [Concomitant]
     Dosage: UNK UNK, UNK
  4. HYDROXYCHLOROQUINE SULFATE [Concomitant]
     Dosage: UNK UNK, UNK
  5. CELECOXIB [Concomitant]
     Dosage: UNK UNK, UNK

REACTIONS (9)
  - Neurological examination abnormal [Not Recovered/Not Resolved]
  - Sensorimotor disorder [Not Recovered/Not Resolved]
  - Depressed mood [Not Recovered/Not Resolved]
  - Crying [Not Recovered/Not Resolved]
  - Anxiety [Not Recovered/Not Resolved]
  - Gait disturbance [Not Recovered/Not Resolved]
  - Vision blurred [Not Recovered/Not Resolved]
  - Visual acuity reduced [Not Recovered/Not Resolved]
  - Frustration [Not Recovered/Not Resolved]
